FAERS Safety Report 7085280-9 (Version None)
Quarter: 2010Q4

REPORT INFORMATION
  Report Type: 
  Country: None (occurrence: None)
  Receive Date: 20101028
  Receipt Date: 20101015
  Transmission Date: 20110411
  Serious: No
  Sender: FDA-Public Use
  Company Number: 2010AP002216

PATIENT

DRUGS (13)
  1. ALENDRONATE SODIUM [Suspect]
     Dosage: 70 MG; QD
     Route: 064
  2. AZATHIOPRINE [Suspect]
     Dosage: 50 MG; QD
     Route: 064
     Dates: start: 20090309
  3. CHLORHEXIDINE [Suspect]
     Route: 064
     Dates: start: 20090309, end: 20090420
  4. HYDROCHLOROQUINE [Suspect]
     Dosage: 200 MG; QD
     Route: 064
     Dates: start: 20090318
  5. LACTULOSE [Suspect]
     Route: 064
     Dates: start: 20090309, end: 20090420
  6. METHYLPREDNISOLONE [Suspect]
     Route: 064
  7. MUPIROCIN [Suspect]
     Route: 064
     Dates: start: 20090309, end: 20090420
  8. PARACETAMOL [Suspect]
     Route: 064
     Dates: start: 20090309, end: 20090420
  9. PREDNISOLONE [Suspect]
     Dates: start: 20090309
  10. SENNA [Suspect]
     Route: 064
     Dates: start: 20090309, end: 20090420
  11. SIMPLE LINCTUS [Suspect]
     Route: 064
     Dates: start: 20090309, end: 20090420
  12. ACETYLSALICYLIC ACID SRT [Concomitant]
  13. FOLIC ACID [Concomitant]

REACTIONS (5)
  - ABORTION INDUCED [None]
  - CLEFT LIP AND PALATE [None]
  - MATERNAL CONDITION AFFECTING FOETUS [None]
  - MATERNAL DRUGS AFFECTING FOETUS [None]
  - TERATOGENICITY [None]
